FAERS Safety Report 14527857 (Version 1)
Quarter: 2018Q1

REPORT INFORMATION
  Report Type: Report from Study
  Country: GB (occurrence: GB)
  Receive Date: 20180213
  Receipt Date: 20180213
  Transmission Date: 20180509
  Serious: Yes (Other)
  Sender: FDA-Public Use
  Company Number: GB-JAZZ-2018-GB-002277

PATIENT
  Age: 65 Year
  Sex: Female

DRUGS (2)
  1. CPX-351 [Suspect]
     Active Substance: CYTARABINE\DAUNORUBICIN
     Dosage: UNK
     Dates: start: 20180104, end: 20180108
  2. POSACONAZOL [Suspect]
     Active Substance: POSACONAZOLE
     Dosage: UNK
     Dates: start: 20180104, end: 20180131

REACTIONS (1)
  - Gamma-glutamyltransferase increased [Not Recovered/Not Resolved]

NARRATIVE: CASE EVENT DATE: 20180122
